FAERS Safety Report 12746672 (Version 4)
Quarter: 2016Q4

REPORT INFORMATION
  Report Type: Spontaneous
  Country: US (occurrence: US)
  Receive Date: 20160915
  Receipt Date: 20161024
  Transmission Date: 20170207
  Serious: Yes (Other)
  Sender: FDA-Public Use
  Company Number: US-PFIZER INC-2016431864

PATIENT
  Age: 59 Year
  Sex: Male

DRUGS (4)
  1. XELJANZ [Suspect]
     Active Substance: TOFACITINIB CITRATE
     Indication: RHEUMATOID ARTHRITIS
     Dosage: 5 MG, UNK
  2. ATENOLOL. [Suspect]
     Active Substance: ATENOLOL
     Indication: BLOOD PRESSURE ABNORMAL
     Dosage: 25 MG, 2X/DAY (MORNING + BEDTIME)
  3. XELJANZ XR [Suspect]
     Active Substance: TOFACITINIB CITRATE
     Indication: RHEUMATOID ARTHRITIS
     Dosage: 11 MG, 1X/DAY (AT BEDTIME)
     Route: 048
     Dates: start: 20160816, end: 20160901
  4. 5-HYDROXYTRYPTOPHAN [Suspect]
     Active Substance: OXITRIPTAN
     Indication: DEPRESSION
     Dosage: 200 MG, 1X/DAY (BEDTIME)
     Dates: start: 2010

REACTIONS (12)
  - Cold sweat [Recovered/Resolved]
  - Body temperature abnormal [Recovered/Resolved]
  - Chills [Recovered/Resolved]
  - Productive cough [Recovered/Resolved]
  - Chromaturia [Recovered/Resolved]
  - Abdominal discomfort [Recovered/Resolved]
  - Pulmonary congestion [Recovered/Resolved]
  - Choking [Recovered/Resolved]
  - Pollakiuria [Recovered/Resolved]
  - Headache [Recovered/Resolved]
  - Abdominal pain upper [Recovered/Resolved]
  - Oropharyngeal pain [Recovered/Resolved]

NARRATIVE: CASE EVENT DATE: 20160817
